FAERS Safety Report 19416569 (Version 4)
Quarter: 2021Q3

REPORT INFORMATION
  Report Type: Report from Study
  Country: IE (occurrence: IE)
  Receive Date: 20210614
  Receipt Date: 20210706
  Transmission Date: 20211014
  Serious: Yes (Life-Threatening, Hospitalization)
  Sender: FDA-Public Use
  Company Number: IE-PFIZER INC-2021682243

PATIENT
  Weight: 45.6 kg

DRUGS (19)
  1. AMBISOME [Concomitant]
     Active Substance: AMPHOTERICIN B
     Indication: ANTIFUNGAL PROPHYLAXIS
     Dosage: 45.0 MG, 1X/DAY (EVERY 24 HOURS)
     Dates: start: 20210528, end: 20210604
  2. ONDANSETRON [Concomitant]
     Active Substance: ONDANSETRON
     Indication: PROPHYLAXIS OF NAUSEA AND VOMITING
     Dosage: 7.0 MG, 3X/DAY (EVERY 8 HOURS)
     Dates: start: 20210528, end: 20210607
  3. POSACONAZOLE [Concomitant]
     Active Substance: POSACONAZOLE
     Indication: ANTIFUNGAL PROPHYLAXIS
     Dosage: 300 MG, 2X/DAY (EVERY 12 HOURS)
     Dates: start: 20210529
  4. PARACETAMOL [Concomitant]
     Active Substance: ACETAMINOPHEN
     Indication: PAIN
     Dosage: 685 MG (EVERY 4?6 HOURS)
     Dates: start: 20210528, end: 20210528
  5. POSACONAZOLE [Concomitant]
     Active Substance: POSACONAZOLE
     Dosage: 300 MG, 1X/DAY (EVERY 24 HOURS)
     Dates: start: 20210607
  6. PARACETAMOL [Concomitant]
     Active Substance: ACETAMINOPHEN
     Indication: PYREXIA
     Dosage: 001.0 G, 4X/DAY  (EVERY 6 HOURS)
     Dates: start: 20210527, end: 20210527
  7. GEMTUZUMAB OZOGAMICIN [Suspect]
     Active Substance: GEMTUZUMAB OZOGAMICIN
     Indication: ACUTE MYELOID LEUKAEMIA
     Dosage: 4.4 MG (OTHER)
     Route: 042
     Dates: start: 20210531, end: 20210531
  8. MITOXANTRONE HCL [Suspect]
     Active Substance: MITOXANTRONE HYDROCHLORIDE
     Indication: ACUTE MYELOID LEUKAEMIA
     Dosage: 17 MG/M2, 1X/DAY
     Route: 042
     Dates: start: 20210528, end: 20210531
  9. PARACETAMOL [Concomitant]
     Active Substance: ACETAMINOPHEN
     Dosage: 675 MG (1 DOSE)
     Dates: start: 20210531, end: 20210531
  10. CYCLIZINE [Concomitant]
     Active Substance: CYCLIZINE
     Indication: PROPHYLAXIS OF NAUSEA AND VOMITING
     Dosage: 50 MG, 3X/DAY (EVERY 8 HOURS)
     Dates: start: 20210529, end: 20210530
  11. CHLORPHENAMINE [Concomitant]
     Active Substance: CHLORPHENIRAMINE MALEATE
     Indication: ANTIALLERGIC THERAPY
     Dosage: 10.0 MG (OTHER)
     Route: 042
     Dates: start: 20210531, end: 20210531
  12. HYDROCORTISONE. [Concomitant]
     Active Substance: HYDROCORTISONE
     Indication: INFLAMMATION
     Dosage: 90.0 MG (OTHER)
     Route: 042
     Dates: start: 20210531, end: 20210531
  13. SEPTRIN [Concomitant]
     Active Substance: SULFAMETHOXAZOLE\TRIMETHOPRIM
     Indication: ANTIBIOTIC THERAPY
     Dosage: 480.0 MG, 2X/DAY (EVERY 12 HOURS)
     Dates: start: 20210528, end: 20210606
  14. LEVOMEPROMAZINE [Concomitant]
     Active Substance: LEVOMEPROMAZINE
     Indication: PROPHYLAXIS OF NAUSEA AND VOMITING
     Dosage: 3.0 MG, 2X/DAY (EVERY 12 HOURS)
     Dates: start: 20210530, end: 20210606
  15. VITAMIN K [Concomitant]
     Active Substance: PHYTONADIONE
     Indication: ANTICOAGULANT THERAPY
     Dosage: 10 MG (OTHER) (IV ON 27TH, 28TH AND 30TH)
     Route: 042
     Dates: start: 20210527, end: 20210530
  16. TAZOCIN [Concomitant]
     Active Substance: PIPERACILLIN SODIUM\TAZOBACTAM SODIUM
     Indication: ANTIBIOTIC THERAPY
     Dosage: 4.0 MG, 3X/DAY (EVERY 8 HOURS)
     Dates: start: 20210527, end: 20210607
  17. IBUPROFEN. [Concomitant]
     Active Substance: IBUPROFEN
     Indication: ANTIINFLAMMATORY THERAPY
     Dosage: 200 MG, SINGLE (OTHER)
     Dates: start: 20210528, end: 20210528
  18. HEPSAL [Concomitant]
     Active Substance: HEPARIN SODIUM
     Indication: FLUSHING
     Dosage: 2.0 ML PER CANMELA, 4X/DAY (EVERY 6 HOURS)
     Dates: start: 20210529, end: 20210607
  19. ORAMORPH SR SUSTAINED RELEASE [Concomitant]
     Active Substance: MORPHINE SULFATE
     Indication: PAIN
     Dosage: 1 MG (EVERY 4?6 HOURS)
     Dates: start: 20210601, end: 20210602

REACTIONS (2)
  - Febrile neutropenia [Recovered/Resolved]
  - Sepsis [Recovered/Resolved]

NARRATIVE: CASE EVENT DATE: 20210608
